FAERS Safety Report 25628133 (Version 1)
Quarter: 2025Q3

REPORT INFORMATION
  Report Type: Spontaneous
  Country: EU (occurrence: EU)
  Receive Date: 20250731
  Receipt Date: 20250731
  Transmission Date: 20251021
  Serious: Yes (Other)
  Sender: MYLAN
  Company Number: None

PATIENT
  Age: 74 Year
  Sex: Female

DRUGS (44)
  1. GABAPENTIN [Suspect]
     Active Substance: GABAPENTIN
     Indication: Pain
     Dosage: 500 MILLIGRAM, TID (3/D)
     Dates: start: 20250509
  2. GABAPENTIN [Suspect]
     Active Substance: GABAPENTIN
     Dosage: 500 MILLIGRAM, TID (3/D)
     Route: 048
     Dates: start: 20250509
  3. GABAPENTIN [Suspect]
     Active Substance: GABAPENTIN
     Dosage: 500 MILLIGRAM, TID (3/D)
     Route: 048
     Dates: start: 20250509
  4. GABAPENTIN [Suspect]
     Active Substance: GABAPENTIN
     Dosage: 500 MILLIGRAM, TID (3/D)
     Dates: start: 20250509
  5. DULOXETINE [Suspect]
     Active Substance: DULOXETINE
     Indication: Pain
     Dosage: 90 MILLIGRAM, QD (INTRODUCTION AVEC AUGMENTATION PROGRESSIVE)
     Dates: start: 20250509
  6. DULOXETINE [Suspect]
     Active Substance: DULOXETINE
     Dosage: 90 MILLIGRAM, QD (INTRODUCTION AVEC AUGMENTATION PROGRESSIVE)
     Route: 048
     Dates: start: 20250509
  7. DULOXETINE [Suspect]
     Active Substance: DULOXETINE
     Dosage: 90 MILLIGRAM, QD (INTRODUCTION AVEC AUGMENTATION PROGRESSIVE)
     Route: 048
     Dates: start: 20250509
  8. DULOXETINE [Suspect]
     Active Substance: DULOXETINE
     Dosage: 90 MILLIGRAM, QD (INTRODUCTION AVEC AUGMENTATION PROGRESSIVE)
     Dates: start: 20250509
  9. PACLITAXEL [Suspect]
     Active Substance: PACLITAXEL
     Indication: HER2 positive breast cancer
     Dosage: 1 DOSAGE FORM, QW
     Dates: start: 20250515, end: 20250620
  10. PACLITAXEL [Suspect]
     Active Substance: PACLITAXEL
     Dosage: 1 DOSAGE FORM, QW
     Route: 042
     Dates: start: 20250515, end: 20250620
  11. PACLITAXEL [Suspect]
     Active Substance: PACLITAXEL
     Dosage: 1 DOSAGE FORM, QW
     Route: 042
     Dates: start: 20250515, end: 20250620
  12. PACLITAXEL [Suspect]
     Active Substance: PACLITAXEL
     Dosage: 1 DOSAGE FORM, QW
     Dates: start: 20250515, end: 20250620
  13. TRASTUZUMAB [Suspect]
     Active Substance: TRASTUZUMAB
     Indication: HER2 positive breast cancer
     Dosage: 1 DOSAGE FORM, Q3W
     Dates: start: 20250515, end: 20250606
  14. TRASTUZUMAB [Suspect]
     Active Substance: TRASTUZUMAB
     Dosage: 1 DOSAGE FORM, Q3W
     Route: 065
     Dates: start: 20250515, end: 20250606
  15. TRASTUZUMAB [Suspect]
     Active Substance: TRASTUZUMAB
     Dosage: 1 DOSAGE FORM, Q3W
     Route: 065
     Dates: start: 20250515, end: 20250606
  16. TRASTUZUMAB [Suspect]
     Active Substance: TRASTUZUMAB
     Dosage: 1 DOSAGE FORM, Q3W
     Dates: start: 20250515, end: 20250606
  17. PERTUZUMAB [Suspect]
     Active Substance: PERTUZUMAB
     Indication: HER2 positive breast cancer
     Dosage: 1 DOSAGE FORM, Q3W
     Dates: start: 20250515, end: 20250706
  18. PERTUZUMAB [Suspect]
     Active Substance: PERTUZUMAB
     Dosage: 1 DOSAGE FORM, Q3W
     Route: 065
     Dates: start: 20250515, end: 20250706
  19. PERTUZUMAB [Suspect]
     Active Substance: PERTUZUMAB
     Dosage: 1 DOSAGE FORM, Q3W
     Route: 065
     Dates: start: 20250515, end: 20250706
  20. PERTUZUMAB [Suspect]
     Active Substance: PERTUZUMAB
     Dosage: 1 DOSAGE FORM, Q3W
     Dates: start: 20250515, end: 20250706
  21. SKENAN [Concomitant]
     Active Substance: MORPHINE SULFATE
     Indication: Cancer pain
     Dosage: 30 MILLIGRAM, QD (SUSTAINED-RELEASE MICROGRANULES IN CAPSULE FORM,10MG-0-20MG)
  22. SKENAN [Concomitant]
     Active Substance: MORPHINE SULFATE
     Dosage: 30 MILLIGRAM, QD (SUSTAINED-RELEASE MICROGRANULES IN CAPSULE FORM,10MG-0-20MG)
     Route: 048
  23. SKENAN [Concomitant]
     Active Substance: MORPHINE SULFATE
     Dosage: 30 MILLIGRAM, QD (SUSTAINED-RELEASE MICROGRANULES IN CAPSULE FORM,10MG-0-20MG)
     Route: 048
  24. SKENAN [Concomitant]
     Active Substance: MORPHINE SULFATE
     Dosage: 30 MILLIGRAM, QD (SUSTAINED-RELEASE MICROGRANULES IN CAPSULE FORM,10MG-0-20MG)
  25. MORPHINE SULFATE [Concomitant]
     Active Substance: MORPHINE SULFATE
     Indication: Cancer pain
  26. MORPHINE SULFATE [Concomitant]
     Active Substance: MORPHINE SULFATE
     Route: 048
  27. MORPHINE SULFATE [Concomitant]
     Active Substance: MORPHINE SULFATE
     Route: 048
  28. MORPHINE SULFATE [Concomitant]
     Active Substance: MORPHINE SULFATE
  29. OXAZEPAM [Concomitant]
     Active Substance: OXAZEPAM
     Indication: Product used for unknown indication
  30. OXAZEPAM [Concomitant]
     Active Substance: OXAZEPAM
     Route: 048
  31. OXAZEPAM [Concomitant]
     Active Substance: OXAZEPAM
     Route: 048
  32. OXAZEPAM [Concomitant]
     Active Substance: OXAZEPAM
  33. ZOPICLONE [Concomitant]
     Active Substance: ZOPICLONE
     Indication: Product used for unknown indication
  34. ZOPICLONE [Concomitant]
     Active Substance: ZOPICLONE
     Route: 048
  35. ZOPICLONE [Concomitant]
     Active Substance: ZOPICLONE
     Route: 048
  36. ZOPICLONE [Concomitant]
     Active Substance: ZOPICLONE
  37. SMECTA [Concomitant]
     Active Substance: MONTMORILLONITE
     Indication: Constipation
  38. SMECTA [Concomitant]
     Active Substance: MONTMORILLONITE
     Route: 048
  39. SMECTA [Concomitant]
     Active Substance: MONTMORILLONITE
     Route: 048
  40. SMECTA [Concomitant]
     Active Substance: MONTMORILLONITE
  41. ACETAMINOPHEN [Concomitant]
     Active Substance: ACETAMINOPHEN
     Indication: Product used for unknown indication
     Dosage: 1 GRAM, QD 1 GRAM, (MAXIMUM 2/D)
  42. ACETAMINOPHEN [Concomitant]
     Active Substance: ACETAMINOPHEN
     Dosage: 1 GRAM, QD 1 GRAM, (MAXIMUM 2/D)
     Route: 065
  43. ACETAMINOPHEN [Concomitant]
     Active Substance: ACETAMINOPHEN
     Dosage: 1 GRAM, QD 1 GRAM, (MAXIMUM 2/D)
     Route: 065
  44. ACETAMINOPHEN [Concomitant]
     Active Substance: ACETAMINOPHEN
     Dosage: 1 GRAM, QD 1 GRAM, (MAXIMUM 2/D)

REACTIONS (1)
  - Cholestatic liver injury [Not Recovered/Not Resolved]

NARRATIVE: CASE EVENT DATE: 20250618
